FAERS Safety Report 18038347 (Version 5)
Quarter: 2021Q1

REPORT INFORMATION
  Report Type: Report from Study
  Country: US (occurrence: US)
  Receive Date: 20200717
  Receipt Date: 20210306
  Transmission Date: 20210419
  Serious: Yes (Hospitalization)
  Sender: FDA-Public Use
  Company Number: NVSC2020US199418

PATIENT
  Sex: Female

DRUGS (2)
  1. WATER PILLS [Concomitant]
     Active Substance: UNSPECIFIED INGREDIENT
     Indication: PRODUCT USED FOR UNKNOWN INDICATION
     Dosage: UNK
     Route: 065
  2. ENTRESTO [Suspect]
     Active Substance: SACUBITRIL\VALSARTAN
     Indication: CARDIAC FAILURE
     Dosage: UNK UNK, BID
     Route: 048

REACTIONS (10)
  - Weight increased [Unknown]
  - Blood potassium increased [Recovering/Resolving]
  - Renal disorder [Unknown]
  - Swelling [Recovering/Resolving]
  - Cardiac failure [Recovering/Resolving]
  - Dry skin [Unknown]
  - Weight decreased [Unknown]
  - Blood iron decreased [Unknown]
  - Fluid overload [Unknown]
  - Fluid retention [Unknown]
